FAERS Safety Report 14872926 (Version 1)
Quarter: 2018Q2

REPORT INFORMATION
  Report Type: Spontaneous
  Country: PL (occurrence: PL)
  Receive Date: 20180510
  Receipt Date: 20180510
  Transmission Date: 20180711
  Serious: Yes (Other)
  Sender: FDA-Public Use
  Company Number: PL-AUROBINDO-AUR-APL-2018-024557

PATIENT
  Sex: Male

DRUGS (5)
  1. DEXTROMETHORPHAN [Suspect]
     Active Substance: DEXTROMETHORPHAN
     Indication: PRODUCT USED FOR UNKNOWN INDICATION
     Dosage: 60 MILLIGRAM
     Route: 065
  2. AVIOMARIN [Suspect]
     Active Substance: DIMENHYDRINATE
     Indication: PRODUCT USED FOR UNKNOWN INDICATION
     Dosage: 1 DOSAGE FORM
     Route: 065
  3. THIOCODIN                          /01295801/ [Suspect]
     Active Substance: CODEINE PHOSPHATE\SULFOGAIACOL
     Indication: PRODUCT USED FOR UNKNOWN INDICATION
     Dosage: 1 DOSAGE TEXT = CODEINE + SULFOGLUACOL ()
     Route: 065
  4. ESCITALOPRAM [Suspect]
     Active Substance: ESCITALOPRAM OXALATE
     Indication: PRODUCT USED FOR UNKNOWN INDICATION
     Dosage: UNK
     Route: 065
  5. THIOCODIN /01295801/ [Suspect]
     Active Substance: CODEINE PHOSPHATE\SULFOGAIACOL
     Indication: PRODUCT USED FOR UNKNOWN INDICATION
     Dosage: 1 DOSAGE TEXT = CODEINE + SULFOGLUACOL
     Route: 065

REACTIONS (7)
  - Head titubation [Unknown]
  - Substance use [None]
  - Alcohol use [None]
  - Drug abuse [Unknown]
  - Miosis [Unknown]
  - Feeling abnormal [Unknown]
  - Laziness [Unknown]
